FAERS Safety Report 19216273 (Version 1)
Quarter: 2021Q2

REPORT INFORMATION
  Report Type: Spontaneous
  Country: US (occurrence: US)
  Receive Date: 20210505
  Receipt Date: 20210505
  Transmission Date: 20210717
  Serious: No
  Sender: FDA-Public Use
  Company Number: US-ASTRAZENECA-2021A325402

PATIENT
  Sex: Female

DRUGS (1)
  1. SYMBICORT [Suspect]
     Active Substance: BUDESONIDE\FORMOTEROL FUMARATE DIHYDRATE
     Dosage: 160/4.5 120?DOSE INHALER UNKNOWN UNKNOWN
     Route: 055

REACTIONS (3)
  - Device malfunction [Unknown]
  - Condition aggravated [Not Recovered/Not Resolved]
  - Wrong technique in device usage process [Recovered/Resolved]
